FAERS Safety Report 7785258-3 (Version None)
Quarter: 2011Q3

REPORT INFORMATION
  Report Type: 
  Country: None (occurrence: None)
  Receive Date: 20110929
  Receipt Date: 20110920
  Transmission Date: 20111222
  Serious: No
  Sender: FDA-Public Use
  Company Number: PHEH2011US05330

PATIENT
  Sex: Male

DRUGS (10)
  1. KLOR-CON [Concomitant]
  2. ASPIRIN [Concomitant]
  3. ACTOS [Concomitant]
  4. LISINOPRIL [Concomitant]
  5. VITAMIN D [Concomitant]
  6. FUROSEMIDE [Concomitant]
  7. TASIGNA [Suspect]
     Dosage: 200 MG, BID
  8. GLIPISCAND [Concomitant]
  9. TASIGNA [Suspect]
     Dosage: 400 MG, BID
     Route: 048
     Dates: start: 20110819
  10. CARVEDILOL [Concomitant]

REACTIONS (1)
  - FULL BLOOD COUNT DECREASED [None]
